FAERS Safety Report 9176128 (Version 1)
Quarter: 2012Q4

REPORT INFORMATION
  Report Type: 
  Country: US (occurrence: US)
  Receive Date: 20120920
  Receipt Date: 20120920
  Transmission Date: 20130627
  Serious: Yes (Other)
  Sender: FDA-Public Use
  Company Number: US-RB-044548-12

PATIENT
  Age: 0 None
  Sex: Male

DRUGS (1)
  1. GENERIC BUPRENORPHINE [Suspect]
     Indication: DRUG DEPENDENCE
     Route: 064
     Dates: start: 201109, end: 201204

REACTIONS (2)
  - Foetal exposure during pregnancy [Recovered/Resolved]
  - Feeding disorder neonatal [Recovered/Resolved]
